FAERS Safety Report 9838786 (Version 2)
Quarter: 2014Q1

REPORT INFORMATION
  Report Type: Spontaneous
  Country: US (occurrence: US)
  Receive Date: 20140123
  Receipt Date: 20140212
  Transmission Date: 20141002
  Serious: No
  Sender: FDA-Public Use
  Company Number: US-PFIZER INC-2014016003

PATIENT
  Age: 82 Year
  Sex: Female

DRUGS (2)
  1. TOLTERODINE TARTRATE [Suspect]
     Dosage: UNK
  2. ESTROGENS CONJUGATED [Suspect]
     Dosage: UNK

REACTIONS (1)
  - Malaise [Unknown]
